FAERS Safety Report 25390820 (Version 1)
Quarter: 2025Q2

REPORT INFORMATION
  Report Type: Spontaneous
  Country: CN (occurrence: CN)
  Receive Date: 20250603
  Receipt Date: 20250603
  Transmission Date: 20250716
  Serious: Yes (Other)
  Sender: MERZ
  Company Number: CN-Merz Pharmaceuticals GmbH-2025050000219

PATIENT

DRUGS (2)
  1. BOTULINUM TOXIN TYPE A [Suspect]
     Active Substance: BOTULINUM TOXIN TYPE A
     Indication: Neuromuscular blocking therapy
     Route: 030
  2. CARBAMAZEPINE [Concomitant]
     Active Substance: CARBAMAZEPINE

REACTIONS (2)
  - Stevens-Johnson syndrome [Recovering/Resolving]
  - Product use in unapproved indication [Unknown]
